FAERS Safety Report 4750031-7 (Version None)
Quarter: 2005Q3

REPORT INFORMATION
  Report Type: 
  Country: None (occurrence: None)
  Receive Date: 20050822
  Receipt Date: 20050805
  Transmission Date: 20060218
  Serious: Yes (Hospitalization)
  Sender: FDA-Public Use
  Company Number: 207411

PATIENT
  Age: 39 Year
  Sex: Female

DRUGS (19)
  1. HERCEPTIN [Suspect]
     Indication: BREAST CANCER
     Dosage: SEE IMAGE
     Route: 042
     Dates: start: 20040421, end: 20040421
  2. HERCEPTIN [Suspect]
     Indication: BREAST CANCER
     Dosage: SEE IMAGE
     Route: 042
     Dates: start: 20040430
  3. DOCETAXEL (DOCETAXEL) [Suspect]
     Indication: BREAST CANCER
     Dosage: 75 MG/M2, Q3W, INTRAVENOUS
     Route: 042
     Dates: start: 20040421, end: 20040421
  4. CARBOPLATIN [Suspect]
     Indication: BREAST CANCER
     Dosage: 6 MG/ML, Q3W, INTRAVENOUS
     Route: 042
     Dates: start: 20040422
  5. TRIFLUCAN (FLUCONAZOLE) [Concomitant]
  6. RABEPRAZOLE SODIUM [Concomitant]
  7. SEROPRAM (CITALOPRAM) [Concomitant]
  8. XANAX [Concomitant]
  9. GLUCOSE (GLUCOSE) [Concomitant]
  10. PARACETAMOL/CODEINE (CODEINE PHOSPHATE, ACETAMINOPHEN ) [Concomitant]
  11. ALPRAZOLAM [Concomitant]
  12. PAROXETINE (PAROXETINE HYDROCHLORIDE) [Concomitant]
  13. GABAPENTIN [Concomitant]
  14. OMEPRAZOLE (MOEPRAZOLE) [Concomitant]
  15. TRAMADOL HCL [Concomitant]
  16. METHYLPREDNISOLONE (METHYLPREDNISOLONE) [Concomitant]
  17. TAMOXIFEN CITRATE [Concomitant]
  18. TETRAZEPAM (TETRAZEPAM) [Concomitant]
  19. MORPHINE [Concomitant]

REACTIONS (7)
  - ABDOMINAL PAIN [None]
  - ANXIETY [None]
  - ASTHENIA [None]
  - DYSPNOEA [None]
  - EJECTION FRACTION DECREASED [None]
  - MENINGISM [None]
  - TREMOR [None]
